FAERS Safety Report 22060955 (Version 1)
Quarter: 2023Q1

REPORT INFORMATION
  Report Type: Spontaneous
  Country: US (occurrence: US)
  Receive Date: 20230303
  Receipt Date: 20230303
  Transmission Date: 20230418
  Serious: No
  Sender: FDA-Public Use
  Company Number: US-PFIZER INC-PV202300038729

PATIENT
  Age: 80 Year
  Sex: Female
  Weight: 56.689 kg

DRUGS (1)
  1. CIPROFLOXACIN [Suspect]
     Active Substance: CIPROFLOXACIN
     Dosage: 250 MG, 2X/DAY

REACTIONS (4)
  - Agitation [Unknown]
  - Dizziness [Unknown]
  - Drug hypersensitivity [Unknown]
  - Off label use [Unknown]
